FAERS Safety Report 6631789-9 (Version None)
Quarter: 2010Q1

REPORT INFORMATION
  Report Type: 
  Country: None (occurrence: None)
  Receive Date: 20100312
  Receipt Date: 20100308
  Transmission Date: 20100710
  Serious: Yes (Life-Threatening, Other)
  Sender: FDA-Public Use
  Company Number: CA-ASTRAZENECA-2010SE10073

PATIENT
  Age: 76 Year
  Sex: Female
  Weight: 63 kg

DRUGS (3)
  1. BUPIVACAINE HCL [Suspect]
     Indication: NERVE BLOCK
     Dosage: 40 ML
     Route: 053
  2. BUPIVACAINE HCL [Suspect]
     Dosage: 2.8 ML
     Route: 053
  3. DIMORPHONE [Suspect]
     Indication: NERVE BLOCK
     Dosage: 400 UG
     Route: 053

REACTIONS (3)
  - BRADYCARDIA [None]
  - CARDIAC ARREST [None]
  - UNRESPONSIVE TO STIMULI [None]
